FAERS Safety Report 15771953 (Version 2)
Quarter: 2019Q1

REPORT INFORMATION
  Report Type: Spontaneous
  Country: JP (occurrence: JP)
  Receive Date: 20181228
  Receipt Date: 20190221
  Transmission Date: 20190417
  Serious: Yes (Hospitalization)
  Sender: FDA-Public Use
  Company Number: JP-ACTELION-A-CH2018-177939

PATIENT
  Age: 29 Year
  Sex: Female

DRUGS (11)
  1. WARFARIN [Concomitant]
     Active Substance: WARFARIN
  2. ALLOPURINOL. [Concomitant]
     Active Substance: ALLOPURINOL
  3. OPSUMIT [Suspect]
     Active Substance: MACITENTAN
     Dosage: 5 MG, QD
     Route: 048
     Dates: start: 20180806, end: 20180808
  4. FUROSEMIDE. [Suspect]
     Active Substance: FUROSEMIDE
     Indication: RIGHT VENTRICULAR FAILURE
     Dosage: 20 MG, BID
     Route: 048
  5. HALFDIGOXIN [Concomitant]
     Active Substance: DIGOXIN
  6. ALDACTONE [Suspect]
     Active Substance: SPIRONOLACTONE
     Indication: RIGHT VENTRICULAR FAILURE
     Dosage: 25 MG, BID
     Route: 048
  7. OPSUMIT [Suspect]
     Active Substance: MACITENTAN
     Indication: PULMONARY ARTERIAL HYPERTENSION
     Dosage: 5 MG, QD
     Route: 048
     Dates: start: 20180813, end: 20180816
  8. OPSUMIT [Suspect]
     Active Substance: MACITENTAN
     Dosage: 10 MG, QD
     Route: 048
     Dates: start: 20180809, end: 20180813
  9. LOSARTAN K [Suspect]
     Active Substance: LOSARTAN POTASSIUM
     Indication: RIGHT VENTRICULAR FAILURE
     Dosage: 50 MG, QD
     Route: 048
     Dates: end: 20180814
  10. CARVEDILOL. [Concomitant]
     Active Substance: CARVEDILOL
  11. SAMSCA [Suspect]
     Active Substance: TOLVAPTAN
     Indication: RIGHT VENTRICULAR FAILURE
     Dosage: 3.25 MG, BID
     Route: 048

REACTIONS (6)
  - Blood urea increased [Recovered/Resolved]
  - Renal impairment [Recovered/Resolved]
  - Blood creatinine increased [Recovered/Resolved]
  - Dehydration [Recovered/Resolved]
  - Diuretic therapy [Recovered/Resolved]
  - Prerenal failure [Recovered/Resolved]

NARRATIVE: CASE EVENT DATE: 20180813
